FAERS Safety Report 8201852-X (Version None)
Quarter: 2012Q1

REPORT INFORMATION
  Report Type: 
  Country: None (occurrence: None)
  Receive Date: 20120312
  Receipt Date: 20110519
  Transmission Date: 20120608
  Serious: Yes (Other)
  Sender: FDA-Public Use
  Company Number: US-ABBOTT-11P-163-0722351-00

PATIENT
  Sex: Female
  Weight: 77.18 kg

DRUGS (15)
  1. AMLODIPINE [Concomitant]
     Indication: HYPERTENSION
  2. COREG [Concomitant]
     Indication: PRODUCT USED FOR UNKNOWN INDICATION
     Dosage: BID
  3. HUMIRA [Suspect]
     Indication: RHEUMATOID ARTHRITIS
     Route: 058
     Dates: start: 20020101
  4. METFORMIN HCL [Concomitant]
     Indication: DIABETES MELLITUS
  5. LISINOPRIL [Concomitant]
     Indication: HYPERTENSION
     Dosage: BID
  6. LASIX [Concomitant]
     Indication: PRODUCT USED FOR UNKNOWN INDICATION
     Dosage: 80 MG DAILY
  7. HUMIRA [Suspect]
  8. JANUVIA [Concomitant]
     Indication: DIABETES MELLITUS
  9. TRAZODONE HCL [Concomitant]
     Indication: PRODUCT USED FOR UNKNOWN INDICATION
     Dosage: 100 MG AT BEDTIME
  10. CARVEDILOL [Concomitant]
     Indication: HYPERTENSION
  11. SYNTHROID [Concomitant]
     Indication: HYPOTHYROIDISM
     Dosage: DAILY
  12. GLYBURIDE [Concomitant]
     Indication: DIABETES MELLITUS
     Dosage: DAILY
  13. HYDRALAZINE HCL [Concomitant]
     Indication: HYPERTENSION
     Dosage: BID
  14. VICODIN [Concomitant]
     Indication: PAIN
     Dosage: 1 TO 1.5 TABS QID PRN
  15. SPIRONOLACTONE [Concomitant]
     Indication: PRODUCT USED FOR UNKNOWN INDICATION
     Dosage: BID

REACTIONS (28)
  - MUSCULOSKELETAL STIFFNESS [None]
  - TONSILLECTOMY [None]
  - JOINT RANGE OF MOTION DECREASED [None]
  - DEFORMITY [None]
  - HERNIA [None]
  - HYSTERECTOMY [None]
  - BREAST CANCER METASTATIC [None]
  - PALLOR [None]
  - JOINT CONTRACTURE [None]
  - NIPPLE INFECTION [None]
  - DRY MOUTH [None]
  - OVERWEIGHT [None]
  - BREAST CANCER STAGE III [None]
  - CHOLECYSTECTOMY [None]
  - MUSCULAR WEAKNESS [None]
  - BREAST MASS [None]
  - DRY EYE [None]
  - HYPOAESTHESIA [None]
  - BREAST CANCER [None]
  - RHEUMATOID ARTHRITIS [None]
  - LIPOMA [None]
  - NUCHAL RIGIDITY [None]
  - JOINT CREPITATION [None]
  - BLOOD GLUCOSE ABNORMAL [None]
  - SKIN DISORDER [None]
  - NIPPLE SWELLING [None]
  - CARDIAC FAILURE CONGESTIVE [None]
  - BLOOD THYROID STIMULATING HORMONE INCREASED [None]
